FAERS Safety Report 9101566 (Version 1)
Quarter: 2013Q1

REPORT INFORMATION
  Report Type: Spontaneous
  Country: US (occurrence: US)
  Receive Date: 20130218
  Receipt Date: 20130218
  Transmission Date: 20140127
  Serious: Yes (Other)
  Sender: FDA-Public Use
  Company Number: US-ASTRAZENECA-2013SE09996

PATIENT
  Age: 59 Year
  Sex: Male

DRUGS (3)
  1. BRILINTA [Suspect]
     Indication: ACUTE MYOCARDIAL INFARCTION
     Dosage: 180MG LOADING DOSE
     Route: 048
     Dates: start: 20130117
  2. BRILINTA [Suspect]
     Indication: ACUTE MYOCARDIAL INFARCTION
     Route: 048
  3. ASPIRIN [Suspect]
     Indication: ACUTE MYOCARDIAL INFARCTION

REACTIONS (1)
  - Thrombosis in device [Unknown]
